FAERS Safety Report 10594606 (Version 2)
Quarter: 2014Q4

REPORT INFORMATION
  Report Type: Spontaneous
  Country: US (occurrence: US)
  Receive Date: 20141120
  Receipt Date: 20141120
  Transmission Date: 20150529
  Serious: No
  Sender: FDA-Public Use
  Company Number: US-TEVA-476576USA

PATIENT
  Age: 10 Year
  Sex: Male

DRUGS (2)
  1. SALBUTAMOL SULFATE [Concomitant]
     Active Substance: ALBUTEROL SULFATE
     Indication: ASTHMA
  2. BUDESONIDE. [Suspect]
     Active Substance: BUDESONIDE
     Indication: ASTHMA
     Dosage: 2 DOSAGE FORMS DAILY; 0.25 MG/2 ML INHALATION

REACTIONS (2)
  - Drug administration error [Unknown]
  - Asthma [Unknown]
